FAERS Safety Report 9378490 (Version 1)
Quarter: 2013Q3

REPORT INFORMATION
  Report Type: Spontaneous
  Country: AR (occurrence: AR)
  Receive Date: 20130702
  Receipt Date: 20130702
  Transmission Date: 20140515
  Serious: Yes (Other)
  Sender: FDA-Public Use
  Company Number: AR-AMGEN-ARGSP2013046008

PATIENT
  Age: 33 Year
  Sex: Female

DRUGS (3)
  1. ENBREL [Suspect]
     Indication: RHEUMATOID ARTHRITIS
     Dosage: 50 MG, WEEKLY
     Route: 065
     Dates: start: 200608
  2. ENBREL [Suspect]
     Dosage: 50 MG, WEEKLY
     Route: 065
     Dates: start: 201109
  3. METHYLPREDNISOLONE [Concomitant]
     Indication: RHEUMATOID ARTHRITIS
     Dosage: UNK
     Dates: start: 2013

REACTIONS (2)
  - Rheumatoid arthritis [Recovered/Resolved]
  - Anaemia [Unknown]
